FAERS Safety Report 5904757-X (Version None)
Quarter: 2008Q3

REPORT INFORMATION
  Report Type: 
  Country: None (occurrence: None)
  Receive Date: 20080909
  Receipt Date: 20080602
  Transmission Date: 20090109
  Serious: Yes (Death)
  Sender: FDA-Public Use
  Company Number: 163-20785-08040967

PATIENT
  Age: 71 Year
  Sex: Male

DRUGS (2)
  1. THALOMID [Suspect]
     Indication: MULTIPLE MYELOMA
     Dosage: 200 MG, 1 IN 1 D, ORAL ; 100MG - 50MG, DAILY, ORAL
     Route: 048
     Dates: start: 20071101, end: 20080201
  2. THALOMID [Suspect]
     Indication: MULTIPLE MYELOMA
     Dosage: 200 MG, 1 IN 1 D, ORAL ; 100MG - 50MG, DAILY, ORAL
     Route: 048
     Dates: start: 20080222, end: 20080201

REACTIONS (1)
  - PNEUMONIA [None]
